FAERS Safety Report 26112247 (Version 1)
Quarter: 2025Q4

REPORT INFORMATION
  Report Type: Spontaneous
  Country: JP (occurrence: JP)
  Receive Date: 20251202
  Receipt Date: 20251202
  Transmission Date: 20260118
  Serious: Yes (Other)
  Sender: OTSUKA
  Company Number: JP-MMM-Otsuka-8XK3A97F

PATIENT
  Age: 74 Year
  Sex: Female

DRUGS (1)
  1. REXULTI [Suspect]
     Active Substance: BREXPIPRAZOLE
     Indication: Depression
     Dosage: 1 MG
     Route: 065

REACTIONS (5)
  - Bone pain [Unknown]
  - Gait inability [Unknown]
  - Gait disturbance [Unknown]
  - Restlessness [Unknown]
  - Tremor [Unknown]

NARRATIVE: CASE EVENT DATE: 20251125
